FAERS Safety Report 8881154 (Version 1)
Quarter: 2012Q4

REPORT INFORMATION
  Report Type: 
  Country: GB (occurrence: GB)
  Receive Date: 20121031
  Receipt Date: 20121031
  Transmission Date: 20130627
  Serious: Yes (Other)
  Sender: FDA-Public Use
  Company Number: GB-ROCHE-1150733

PATIENT
  Age: 66 Year
  Sex: Female
  Weight: 70 kg

DRUGS (11)
  1. RITUXIMAB [Suspect]
     Indication: RHEUMATOID ARTHRITIS
     Route: 042
     Dates: start: 20120714, end: 20120927
  2. ASPIRIN [Concomitant]
  3. BONVIVA [Concomitant]
  4. CLARITYN [Concomitant]
  5. CODEINE PHOSPHATE [Concomitant]
     Route: 065
  6. DIPYRIDAMOLE [Concomitant]
  7. LANSOPRAZOLE [Concomitant]
  8. LISINOPRIL [Concomitant]
  9. MEBEVERINE [Concomitant]
  10. PARACETAMOL [Concomitant]
  11. PREDNISOLONE [Concomitant]

REACTIONS (5)
  - Hypersensitivity [Recovered/Resolved]
  - Ear pruritus [Recovered/Resolved]
  - Throat irritation [Recovered/Resolved]
  - Swelling face [Recovered/Resolved]
  - Pharyngeal oedema [Recovered/Resolved]
